FAERS Safety Report 25438375 (Version 1)
Quarter: 2025Q2

REPORT INFORMATION
  Report Type: Spontaneous
  Country: US (occurrence: US)
  Receive Date: 20250616
  Receipt Date: 20250616
  Transmission Date: 20250716
  Serious: No
  Sender: RECKITT BENCKISER
  Company Number: US-RECKITT BENCKISER HEALTHCARE INT LIMITED-RB-101005-2022

PATIENT

DRUGS (1)
  1. MUCINEX DM [Suspect]
     Active Substance: DEXTROMETHORPHAN HYDROBROMIDE\GUAIFENESIN
     Indication: Secretion discharge
     Route: 048

REACTIONS (2)
  - Anxiety [Not Recovered/Not Resolved]
  - Malaise [Not Recovered/Not Resolved]
